FAERS Safety Report 9223486 (Version 2)
Quarter: 2013Q2

REPORT INFORMATION
  Report Type: Spontaneous
  Country: DE (occurrence: DE)
  Receive Date: 20130410
  Receipt Date: 20130528
  Transmission Date: 20140414
  Serious: Yes (Life-Threatening, Hospitalization)
  Sender: FDA-Public Use
  Company Number: DE-ASTRAZENECA-2013SE22732

PATIENT
  Sex: Male

DRUGS (2)
  1. BRILIQUE [Suspect]
     Route: 048
  2. KETOCONAZOL HAIRWASHING SHAMPOO [Interacting]

REACTIONS (2)
  - Drug interaction [Recovered/Resolved]
  - Anaphylactic shock [Recovered/Resolved]
